FAERS Safety Report 6701397-X (Version None)
Quarter: 2010Q2

REPORT INFORMATION
  Report Type: 
  Country: None (occurrence: None)
  Receive Date: 20100429
  Receipt Date: 20100420
  Transmission Date: 20101027
  Serious: No
  Sender: FDA-Public Use
  Company Number: 2007BI024011

PATIENT
  Sex: Female

DRUGS (1)
  1. TYSABRI [Suspect]
     Indication: MULTIPLE SCLEROSIS
     Route: 042
     Dates: start: 20061013, end: 20070926

REACTIONS (7)
  - DIARRHOEA [None]
  - FATIGUE [None]
  - HAEMORRHOIDS [None]
  - MIGRAINE [None]
  - PERIPHERAL COLDNESS [None]
  - STRESS [None]
  - VOMITING [None]
